FAERS Safety Report 9208697 (Version 1)
Quarter: 2013Q1

REPORT INFORMATION
  Report Type: Spontaneous
  Country: US (occurrence: None)
  Receive Date: 20120806
  Receipt Date: 20120806
  Transmission Date: 20140127
  Serious: Yes (Other)
  Sender: FDA-Public Use
  Company Number: 2011AT000480

PATIENT
  Age: 69 Year
  Sex: Male

DRUGS (6)
  1. EDEX [Suspect]
     Indication: ERECTILE DYSFUNCTION
     Route: 011
     Dates: start: 2005
  2. METOPROLOL [Concomitant]
  3. ZOCOR [Concomitant]
  4. LIPITOR [Concomitant]
  5. LORAZEPAM [Concomitant]
  6. NITROSTAT [Concomitant]

REACTIONS (1)
  - Penile curvature [None]
